FAERS Safety Report 4749222-0 (Version None)
Quarter: 2005Q3

REPORT INFORMATION
  Report Type: 
  Country: None (occurrence: None)
  Receive Date: 20050812
  Receipt Date: 20050422
  Transmission Date: 20060218
  Serious: Yes (Hospitalization)
  Sender: FDA-Public Use
  Company Number: 402776

PATIENT
  Sex: Female

DRUGS (3)
  1. PEGASYS [Suspect]
     Indication: HEPATITIS C
     Dosage: SUBCUTANEOUS
     Route: 058
     Dates: start: 20050415, end: 20050415
  2. COPEGUS [Suspect]
     Indication: HEPATITIS C
     Dosage: ORAL
     Route: 048
     Dates: start: 20050415, end: 20050415
  3. METHADONE HCL [Suspect]
     Indication: DRUG DEPENDENCE
     Dosage: ORAL
     Route: 048

REACTIONS (5)
  - ALOPECIA [None]
  - DRUG DEPENDENCE [None]
  - GASTROINTESTINAL HAEMORRHAGE [None]
  - HEADACHE [None]
  - VARICES OESOPHAGEAL [None]
